FAERS Safety Report 6275943-7 (Version None)
Quarter: 2009Q3

REPORT INFORMATION
  Report Type: 
  Country: None (occurrence: None)
  Receive Date: 20090720
  Receipt Date: 20090708
  Transmission Date: 20100115
  Serious: Yes (Other)
  Sender: FDA-Public Use
  Company Number: 2009S1005371

PATIENT
  Age: 72 Year
  Sex: Female

DRUGS (6)
  1. PHOSPHOSODA FLAVOR NOT SPECIFIED [Suspect]
     Indication: COLONOSCOPY
     Dosage: 90 ML; TOTAL; PO
     Route: 048
     Dates: start: 20060701, end: 20060701
  2. METOPROLOL TARTRATE [Concomitant]
  3. LISINOPRIL [Concomitant]
  4. LOVASTATIN [Concomitant]
  5. CALCITRATE [Concomitant]
  6. TYLENOL [Concomitant]

REACTIONS (3)
  - ANAEMIA [None]
  - HAEMORRHAGE [None]
  - NEPHROCALCINOSIS [None]
